FAERS Safety Report 6656199-X (Version None)
Quarter: 2010Q1

REPORT INFORMATION
  Report Type: 
  Country: None (occurrence: None)
  Receive Date: 20100326
  Receipt Date: 20100326
  Transmission Date: 20100710
  Serious: Yes (Other)
  Sender: FDA-Public Use
  Company Number: None

PATIENT
  Age: 50 Year
  Sex: Female

DRUGS (1)
  1. LUPRON DEPOT [Suspect]
     Dates: start: 20100224, end: 20100224

REACTIONS (5)
  - AMNESIA [None]
  - DIZZINESS [None]
  - HEART RATE INCREASED [None]
  - HEPATIC ENZYME INCREASED [None]
  - HYPERTENSION [None]
